FAERS Safety Report 21959052 (Version 1)
Quarter: 2023Q1

REPORT INFORMATION
  Report Type: Spontaneous
  Country: US (occurrence: US)
  Receive Date: 20230206
  Receipt Date: 20230206
  Transmission Date: 20230418
  Serious: Yes (Hospitalization)
  Sender: FDA-Public Use
  Company Number: US-MYLANLABS-2023M1013383

PATIENT
  Age: 9 Decade
  Sex: Female

DRUGS (2)
  1. VERAPAMIL [Interacting]
     Active Substance: VERAPAMIL HYDROCHLORIDE
     Indication: Product used for unknown indication
     Dosage: UNK
     Route: 065
  2. PAXLOVID [Interacting]
     Active Substance: NIRMATRELVIR\RITONAVIR
     Indication: COVID-19
     Dosage: UNK
     Route: 065

REACTIONS (9)
  - Electrocardiogram QRS complex prolonged [Recovered/Resolved]
  - Hyperglycaemia [Unknown]
  - Metabolic acidosis [Unknown]
  - Toxicity to various agents [Unknown]
  - Drug interaction [Unknown]
  - Asthenia [Unknown]
  - Lethargy [Unknown]
  - Mental status changes [Unknown]
  - Bradycardia [Recovered/Resolved]
